FAERS Safety Report 12297355 (Version 1)
Quarter: 2016Q2

REPORT INFORMATION
  Report Type: Spontaneous
  Country: US (occurrence: US)
  Receive Date: 20160422
  Receipt Date: 20160422
  Transmission Date: 20160815
  Serious: No
  Sender: FDA-Public Use
  Company Number: ALCN2016US002674

PATIENT
  Sex: Male
  Weight: 75.74 kg

DRUGS (1)
  1. LATANOPROST. [Suspect]
     Active Substance: LATANOPROST
     Indication: GLAUCOMA
     Dosage: 1, GTT, QD
     Route: 047
     Dates: start: 2015

REACTIONS (2)
  - Groin infection [Recovered/Resolved]
  - Pruritus generalised [Not Recovered/Not Resolved]
